FAERS Safety Report 12090341 (Version 2)
Quarter: 2016Q1

REPORT INFORMATION
  Report Type: Spontaneous
  Country: US (occurrence: US)
  Receive Date: 20160218
  Receipt Date: 20160224
  Transmission Date: 20160526
  Serious: Yes (Hospitalization, Other)
  Sender: FDA-Public Use
  Company Number: US-JNJFOC-20160215192

PATIENT
  Sex: Female
  Weight: 74.83 kg

DRUGS (2)
  1. ADEMPAS [Suspect]
     Active Substance: RIOCIGUAT
     Indication: PULMONARY ARTERIAL HYPERTENSION
     Route: 048
     Dates: start: 20151228, end: 20160111
  2. XARELTO [Suspect]
     Active Substance: RIVAROXABAN
     Indication: PRODUCT USED FOR UNKNOWN INDICATION
     Route: 048

REACTIONS (13)
  - Haemoglobin decreased [Unknown]
  - Weight increased [Unknown]
  - Fluid overload [Unknown]
  - Haemorrhage [Unknown]
  - Dyspnoea [Unknown]
  - Pain in extremity [Unknown]
  - Injury [Unknown]
  - Deep vein thrombosis [Unknown]
  - Peripheral swelling [Unknown]
  - Oedema peripheral [Unknown]
  - Oedema [Unknown]
  - Pulmonary thrombosis [Unknown]
  - Fluid retention [Unknown]
